FAERS Safety Report 19244898 (Version 1)
Quarter: 2021Q2

REPORT INFORMATION
  Report Type: Spontaneous
  Country: US (occurrence: US)
  Receive Date: 20210511
  Receipt Date: 20210511
  Transmission Date: 20210717
  Serious: Yes (Life-Threatening, Hospitalization, Other)
  Sender: FDA-Public Use
  Company Number: US-SA-2021SA149077

PATIENT
  Age: 70 Year
  Sex: Female
  Weight: 99.5 kg

DRUGS (2)
  1. RUXOLITINIB [Suspect]
     Active Substance: RUXOLITINIB
     Indication: CYTOKINE STORM
     Dosage: 5 MG, BID
     Route: 048
     Dates: start: 20201129
  2. LOVENOX [Suspect]
     Active Substance: ENOXAPARIN SODIUM
     Indication: FIBRIN D DIMER INCREASED
     Dosage: UNK
     Dates: start: 2020

REACTIONS (7)
  - Flank pain [Unknown]
  - Haemoglobin decreased [Unknown]
  - Renal impairment [Recovered/Resolved]
  - Retroperitoneal haemorrhage [Recovered/Resolved]
  - Hypotension [Unknown]
  - Renal tubular injury [Recovered/Resolved]
  - Renal ischaemia [Recovered/Resolved]

NARRATIVE: CASE EVENT DATE: 20201205
